FAERS Safety Report 17406794 (Version 1)
Quarter: 2020Q1

REPORT INFORMATION
  Report Type: Spontaneous
  Country: US (occurrence: US)
  Receive Date: 20200128
  Receipt Date: 20200128
  Transmission Date: 20200409
  Serious: Yes (Hospitalization)
  Sender: FDA-Public Use
  Company Number: None

PATIENT
  Age: 61 Year
  Sex: Female

DRUGS (15)
  1. SLIDENADIL [Concomitant]
  2. ADVAIR HFA [Concomitant]
     Active Substance: FLUTICASONE PROPIONATE\SALMETEROL XINAFOATE
  3. IBU [Concomitant]
     Active Substance: IBUPROFEN
  4. XALATAN [Concomitant]
     Active Substance: LATANOPROST
  5. VENTOLIN [Concomitant]
     Active Substance: ALBUTEROL SULFATE
  6. VITAMIN D [Concomitant]
     Active Substance: VITAMIN D NOS
  7. TIVICAY [Suspect]
     Active Substance: DOLUTEGRAVIR SODIUM
     Indication: X-RAY
     Route: 048
  8. BUMEX [Concomitant]
     Active Substance: BUMETANIDE
  9. DESCOVY [Concomitant]
     Active Substance: EMTRICITABINE\TENOFOVIR ALAFENAMIDE FUMARATE
  10. TRAMADOL. [Concomitant]
     Active Substance: TRAMADOL
  11. PRENATAL VITAMIN [Concomitant]
     Active Substance: VITAMINS
  12. PREPLUS [Concomitant]
     Active Substance: .ALPHA.-TOCOPHEROL ACETATE, DL-\.BETA.-CAROTENE\ASCORBIC ACID\CALCIUM CARBONATE\CHOLECALCIFEROL\CUPRIC OXIDE\CYANOCOBALAMIN\FERROUS FUMARATE\FOLIC ACID\NIACINAMIDE\PYRIDOXINE HYDROCHLORIDE\RIBOFLAVIN\THIAMINE MONONITRATE\ZINC OXIDE
  13. POTASSIUM [Concomitant]
     Active Substance: POTASSIUM
  14. BUETANIDE [Concomitant]
  15. CHANTIX [Concomitant]
     Active Substance: VARENICLINE TARTRATE

REACTIONS (2)
  - Chronic obstructive pulmonary disease [None]
  - Dyspnoea [None]
